FAERS Safety Report 12172657 (Version 1)
Quarter: 2016Q1

REPORT INFORMATION
  Report Type: Spontaneous
  Country: US (occurrence: US)
  Receive Date: 20160311
  Receipt Date: 20160311
  Transmission Date: 20160526
  Serious: Yes (Death)
  Sender: FDA-Public Use
  Company Number: PHHY2016US030065

PATIENT

DRUGS (1)
  1. CAFFEINE CITRATE,ERGOTAMINE TARTRATE [Suspect]
     Active Substance: CAFFEINE CITRATE\ERGOTAMINE TARTRATE
     Indication: PRODUCT USED FOR UNKNOWN INDICATION
     Dosage: UNK
     Route: 065

REACTIONS (4)
  - Seizure [Fatal]
  - Altered state of consciousness [Fatal]
  - Ergot poisoning [Fatal]
  - Product use issue [Unknown]
